FAERS Safety Report 6355741-6 (Version None)
Quarter: 2009Q3

REPORT INFORMATION
  Report Type: 
  Country: None (occurrence: None)
  Receive Date: 20090915
  Receipt Date: 20070514
  Transmission Date: 20100115
  Serious: Yes (Death)
  Sender: FDA-Public Use
  Company Number: US-ASTRAZENECA-2006UW21679

PATIENT
  Age: 23 Year
  Sex: Male
  Weight: 136.1 kg

DRUGS (3)
  1. SEROQUEL [Suspect]
     Indication: PSYCHOTIC DISORDER
     Route: 048
     Dates: start: 20010101
  2. THORAZINE [Concomitant]
     Dosage: TOTAL DAILY DOSE 50 MG
  3. METHADONE HCL [Concomitant]

REACTIONS (2)
  - DEATH [None]
  - HYPERGLYCAEMIA [None]
